FAERS Safety Report 20410937 (Version 1)
Quarter: 2022Q1

REPORT INFORMATION
  Report Type: Spontaneous
  Country: US (occurrence: US)
  Receive Date: 20220201
  Receipt Date: 20220201
  Transmission Date: 20220423
  Serious: Yes (Other)
  Sender: FDA-Public Use
  Company Number: US-ELI_LILLY_AND_COMPANY-US202201008529

PATIENT
  Sex: Male

DRUGS (2)
  1. HUMULIN R U-500 [Suspect]
     Active Substance: INSULIN HUMAN
     Indication: Product used for unknown indication
     Dosage: UNK, UNKNOWN
     Route: 058
     Dates: start: 2019
  2. TRESIBA [Concomitant]
     Active Substance: INSULIN DEGLUDEC
     Indication: Product used for unknown indication

REACTIONS (6)
  - Renal cancer [Unknown]
  - Neoplasm malignant [Unknown]
  - Amnesia [Unknown]
  - Lymphadenopathy [Unknown]
  - Diabetic neuropathy [Unknown]
  - Spondylitis [Unknown]
